FAERS Safety Report 7436691-0 (Version None)
Quarter: 2011Q2

REPORT INFORMATION
  Report Type: 
  Country: None (occurrence: None)
  Receive Date: 20110415
  Receipt Date: 20110330
  Transmission Date: 20111010
  Serious: Yes (Hospitalization, Other)
  Sender: FDA-Public Use
  Company Number: 2011P1004987

PATIENT
  Age: 60 Year
  Sex: Female
  Weight: 62.5964 kg

DRUGS (11)
  1. PRILOSEC [Concomitant]
  2. MAGNESIUM [Concomitant]
  3. VITAMIN D [Concomitant]
  4. SPIRIVA [Concomitant]
  5. ASPIRIN [Concomitant]
  6. FOLIC ACID [Concomitant]
  7. FORTICAL [Concomitant]
  8. CITRACAL [Concomitant]
  9. WARFARIN SODIUM [Suspect]
     Indication: THROMBOSIS
     Dosage: 2.5 MG;PER PT/INR;PO  }25 YEARS : 5 MG;PER PT/INR;PO
     Route: 048
  10. WARFARIN SODIUM [Suspect]
     Indication: THROMBOSIS
     Dosage: 2.5 MG;PER PT/INR;PO  }25 YEARS : 5 MG;PER PT/INR;PO
     Route: 048
  11. HYDROXYUREA [Concomitant]

REACTIONS (3)
  - BLUE TOE SYNDROME [None]
  - RETINAL VASCULAR THROMBOSIS [None]
  - PHARYNGITIS STREPTOCOCCAL [None]
